FAERS Safety Report 6978196-7 (Version None)
Quarter: 2010Q3

REPORT INFORMATION
  Report Type: 
  Country: None (occurrence: None)
  Receive Date: 20100913
  Receipt Date: 20100909
  Transmission Date: 20110219
  Serious: Yes (Death, Hospitalization)
  Sender: FDA-Public Use
  Company Number: PHHO2010FR08580

PATIENT
  Sex: Male
  Weight: 58 kg

DRUGS (5)
  1. MYCOPHENOLIC ACID [Suspect]
     Indication: RENAL TRANSPLANT
     Dosage: 1440MG/DAILY
     Route: 048
     Dates: start: 20100415, end: 20100526
  2. MYCOPHENOLIC ACID [Suspect]
     Dosage: 720MG/ DAY
     Route: 048
     Dates: start: 20100527, end: 20100528
  3. MYCOPHENOLIC ACID [Suspect]
     Dosage: UNK
     Route: 048
     Dates: end: 20100601
  4. NEORAL [Suspect]
     Indication: RENAL TRANSPLANT
     Dosage: 250 MG/DAILY
     Route: 048
     Dates: start: 20100415, end: 20100601
  5. NO TREATMENT RECEIVED NOMED [Suspect]
     Dosage: NO TREATMENT

REACTIONS (9)
  - ACUTE RESPIRATORY DISTRESS SYNDROME [None]
  - ESCHERICHIA BACTERAEMIA [None]
  - LEUKOPENIA [None]
  - LUNG DISORDER [None]
  - MULTI-ORGAN FAILURE [None]
  - PNEUMONIA [None]
  - PYELOCALIECTASIS [None]
  - SEPTIC SHOCK [None]
  - STENT PLACEMENT [None]
